FAERS Safety Report 6122856-7 (Version None)
Quarter: 2009Q1

REPORT INFORMATION
  Report Type: 
  Country: None (occurrence: None)
  Receive Date: 20090318
  Receipt Date: 20090309
  Transmission Date: 20090719
  Serious: Yes (Hospitalization)
  Sender: FDA-Public Use
  Company Number: B0564014A

PATIENT
  Age: 70 Year
  Sex: Female

DRUGS (3)
  1. LAMICTAL [Suspect]
     Route: 048
     Dates: start: 20080801, end: 20080929
  2. RIVOTRIL [Concomitant]
     Dosage: .5MG PER DAY
     Route: 048
     Dates: start: 20080801, end: 20080929
  3. DEPAKOTE [Concomitant]
     Dosage: 625MG PER DAY
     Route: 048

REACTIONS (9)
  - ATAXIA [None]
  - BALANCE DISORDER [None]
  - BINOCULAR EYE MOVEMENT DISORDER [None]
  - FALL [None]
  - GAIT DISTURBANCE [None]
  - LEUKOPENIA [None]
  - RASH MACULO-PAPULAR [None]
  - TENDON DISORDER [None]
  - THROMBOCYTOPENIA [None]
